FAERS Safety Report 16581371 (Version 1)
Quarter: 2019Q3

REPORT INFORMATION
  Report Type: Spontaneous
  Country: US (occurrence: US)
  Receive Date: 20190716
  Receipt Date: 20190716
  Transmission Date: 20191004
  Serious: No
  Sender: FDA-Public Use
  Company Number: US-UPSHER-SMITH LABORATORIES, LLC-2018USL00495

PATIENT
  Sex: Male
  Weight: 111.11 kg

DRUGS (2)
  1. TESTOSTERONE. [Suspect]
     Active Substance: TESTOSTERONE
     Indication: CARDIOMETABOLIC SYNDROME
     Dosage: 100 MG, 1X/DAY
     Route: 061
     Dates: start: 2018
  2. TESTOSTERONE. [Suspect]
     Active Substance: TESTOSTERONE
     Indication: HYPOGONADISM
     Dosage: 100 MG, 1X/DAY
     Route: 061
     Dates: start: 201711, end: 2018

REACTIONS (1)
  - Blood testosterone decreased [Recovered/Resolved]

NARRATIVE: CASE EVENT DATE: 2018
